FAERS Safety Report 4363806-3 (Version None)
Quarter: 2004Q2

REPORT INFORMATION
  Report Type: 
  Country: None (occurrence: None)
  Receive Date: 20040521
  Receipt Date: 20040414
  Transmission Date: 20050107
  Serious: Yes (Hospitalization)
  Sender: FDA-Public Use
  Company Number: 2004213285GR

PATIENT
  Age: 82 Year
  Sex: Male

DRUGS (4)
  1. ARACYTIN(CYTARABINE)POWDER, STERILE [Suspect]
     Indication: ACUTE MYELOID LEUKAEMIA
  2. IDARUBICIN HCL [Suspect]
     Indication: ACUTE MYELOID LEUKAEMIA
     Dosage: 16 MG/M2
  3. PROPAFENONE HCL [Suspect]
     Indication: ATRIAL FIBRILLATION
  4. TRETINOIN [Suspect]
     Indication: ACUTE MYELOID LEUKAEMIA

REACTIONS (22)
  - ATRIAL FIBRILLATION [None]
  - BUNDLE BRANCH BLOCK LEFT [None]
  - CARDIAC MURMUR [None]
  - CONDUCTION DISORDER [None]
  - CREPITATIONS [None]
  - DILATATION VENTRICULAR [None]
  - DRUG INTERACTION [None]
  - DRUG TOXICITY [None]
  - ECHOCARDIOGRAM ABNORMAL [None]
  - ELECTROCARDIOGRAM REPOLARISATION ABNORMALITY [None]
  - HEART RATE INCREASED [None]
  - HEART SOUNDS ABNORMAL [None]
  - HYPOKINESIA [None]
  - LEUKAEMIA RECURRENT [None]
  - MITRAL VALVE INCOMPETENCE [None]
  - PULMONARY OEDEMA [None]
  - QRS AXIS ABNORMAL [None]
  - TACHYPNOEA [None]
  - TRICUSPID VALVE INCOMPETENCE [None]
  - VENOUS PRESSURE JUGULAR INCREASED [None]
  - VENTRICULAR HYPERTROPHY [None]
  - VENTRICULAR HYPOKINESIA [None]
